FAERS Safety Report 18016170 (Version 4)
Quarter: 2020Q3

REPORT INFORMATION
  Report Type: Report from Study
  Country: JP (occurrence: JP)
  Receive Date: 20200713
  Receipt Date: 20200828
  Transmission Date: 20201103
  Serious: No
  Sender: FDA-Public Use
  Company Number: JP-JNJFOC-20200715253

PATIENT

DRUGS (5)
  1. AZATHIOPRINE. [Concomitant]
     Active Substance: AZATHIOPRINE
  2. STELARA [Suspect]
     Active Substance: USTEKINUMAB
     Indication: CROHN^S DISEASE
     Route: 058
  3. STELARA [Suspect]
     Active Substance: USTEKINUMAB
     Route: 041
  4. TACROLIMUS. [Concomitant]
     Active Substance: TACROLIMUS
  5. MERCAPTOPURINE. [Concomitant]
     Active Substance: MERCAPTOPURINE

REACTIONS (6)
  - Gastroenteritis viral [Unknown]
  - Off label use [Unknown]
  - Upper respiratory tract infection [Unknown]
  - Cystitis [Unknown]
  - Product use issue [Unknown]
  - Therapeutic response decreased [Unknown]
